FAERS Safety Report 26147688 (Version 1)
Quarter: 2025Q4

REPORT INFORMATION
  Report Type: Spontaneous
  Country: EU (occurrence: EU)
  Receive Date: 20251211
  Receipt Date: 20251211
  Transmission Date: 20260117
  Serious: Yes (Other)
  Sender: MERCK SHARP & DOHME LLC
  Company Number: EU-009507513-2357512

PATIENT
  Age: 44 Year
  Sex: Female

DRUGS (5)
  1. ELBASVIR\GRAZOPREVIR [Suspect]
     Active Substance: ELBASVIR\GRAZOPREVIR
     Indication: Hepatitis C
     Dosage: ONCE DAILY AROUND 10:00 PM
     Dates: start: 20251120
  2. PLAQUENIL [Concomitant]
     Active Substance: HYDROXYCHLOROQUINE SULFATE
  3. TIZANIDINE [Concomitant]
     Active Substance: TIZANIDINE
  4. VALDOXAN [Concomitant]
     Active Substance: AGOMELATINE
  5. Gordius [Concomitant]

REACTIONS (4)
  - Rheumatoid arthritis [Unknown]
  - Headache [Unknown]
  - Abdominal pain [Unknown]
  - Abdominal distension [Unknown]

NARRATIVE: CASE EVENT DATE: 20251121
